FAERS Safety Report 8480675-0 (Version None)
Quarter: 2012Q3

REPORT INFORMATION
  Report Type: 
  Country: None (occurrence: None)
  Receive Date: 20120702
  Receipt Date: 20120627
  Transmission Date: 20120928
  Serious: No
  Sender: FDA-Public Use
  Company Number: US-PFIZER INC-2012155107

PATIENT
  Sex: Male
  Weight: 23.1 kg

DRUGS (4)
  1. ACETAMINOPHEN [Concomitant]
     Dosage: UNK, AS NEEDED
  2. CHILDREN'S ADVIL [Suspect]
     Indication: NASOPHARYNGITIS
  3. CHILDREN'S ADVIL [Suspect]
     Indication: INFLUENZA
  4. CHILDREN'S ADVIL [Suspect]
     Indication: PYREXIA
     Dosage: UNK, AS NEEDED
     Route: 048
     Dates: start: 20110401, end: 20120626

REACTIONS (1)
  - RASH [None]
